FAERS Safety Report 21714243 (Version 1)
Quarter: 2022Q4

REPORT INFORMATION
  Report Type: Spontaneous
  Country: FR (occurrence: FR)
  Receive Date: 20221212
  Receipt Date: 20221212
  Transmission Date: 20230113
  Serious: Yes (Hospitalization)
  Sender: FDA-Public Use
  Company Number: None

PATIENT
  Age: 74 Year
  Sex: Male
  Weight: 105 kg

DRUGS (13)
  1. LINEZOLID [Suspect]
     Active Substance: LINEZOLID
     Indication: Gram stain positive
     Dosage: UNK
     Route: 042
     Dates: start: 20220326, end: 20220328
  2. SPIRAMYCIN ADIPATE [Suspect]
     Active Substance: SPIRAMYCIN ADIPATE
     Indication: Bronchitis pneumococcal
     Dosage: UNK
     Route: 042
     Dates: start: 20220319, end: 20220328
  3. CORDARONE [Suspect]
     Active Substance: AMIODARONE HYDROCHLORIDE
     Indication: Atrial fibrillation
     Dosage: UNK
     Route: 042
     Dates: start: 20220319, end: 20220328
  4. OSELTAMIVIR [Suspect]
     Active Substance: OSELTAMIVIR
     Indication: Influenza
     Dosage: UNK
     Route: 042
     Dates: start: 20220319, end: 20220328
  5. CEFOTAXIME SODIUM [Suspect]
     Active Substance: CEFOTAXIME SODIUM
     Indication: Bronchitis pneumococcal
     Dosage: UNK
     Route: 042
     Dates: start: 20220319, end: 20220328
  6. PRIMPERAN [Concomitant]
     Active Substance: METOCLOPRAMIDE HYDROCHLORIDE
  7. SUFENTANIL [Concomitant]
     Active Substance: SUFENTANIL
  8. PROPOFOL [Concomitant]
     Active Substance: PROPOFOL
  9. NOREPINEPHRINE [Concomitant]
     Active Substance: NOREPINEPHRINE
  10. INSULIN NOS [Concomitant]
     Active Substance: INSULIN NOS
  11. ESOMEPRAZOLE [Concomitant]
     Active Substance: ESOMEPRAZOLE
  12. FUROSEMIDE [Concomitant]
     Active Substance: FUROSEMIDE
  13. HEPARIN [Concomitant]
     Active Substance: HEPARIN SODIUM

REACTIONS (1)
  - Acute generalised exanthematous pustulosis [Recovered/Resolved]

NARRATIVE: CASE EVENT DATE: 20220328
